FAERS Safety Report 25770463 (Version 1)
Quarter: 2025Q3

REPORT INFORMATION
  Report Type: Spontaneous
  Country: CN (occurrence: CN)
  Receive Date: 20250908
  Receipt Date: 20250908
  Transmission Date: 20251020
  Serious: Yes (Other)
  Sender: Long Grove Pharmaceuticals
  Company Number: CN-Long Grove-000141

PATIENT
  Age: 45 Year
  Sex: Male

DRUGS (1)
  1. TRIAMCINOLONE ACETONIDE [Suspect]
     Active Substance: TRIAMCINOLONE ACETONIDE
     Indication: Dermatitis allergic
     Route: 058

REACTIONS (3)
  - Retinal artery embolism [Recovered/Resolved]
  - Retinal oedema [Recovered/Resolved]
  - Blindness [Recovered/Resolved]
